FAERS Safety Report 24435438 (Version 1)
Quarter: 2024Q4

REPORT INFORMATION
  Report Type: Spontaneous
  Country: JP (occurrence: JP)
  Receive Date: 20241015
  Receipt Date: 20241015
  Transmission Date: 20250115
  Serious: No
  Sender: ALKEM
  Company Number: JP-ALKEM LABORATORIES LIMITED-JP-ALKEM-2024-19791

PATIENT
  Age: 39 Year
  Sex: Male

DRUGS (2)
  1. APREMILAST [Suspect]
     Active Substance: APREMILAST
     Indication: Benign familial pemphigus
     Dosage: 60 MILLIGRAM, QD
     Route: 065
  2. ETRETINATE [Concomitant]
     Active Substance: ETRETINATE
     Indication: Benign familial pemphigus
     Dosage: UNK
     Route: 065

REACTIONS (1)
  - Therapy non-responder [Unknown]
